FAERS Safety Report 9290634 (Version 2)
Quarter: 2013Q2

REPORT INFORMATION
  Report Type: Spontaneous
  Country: IT (occurrence: IT)
  Receive Date: 20130515
  Receipt Date: 20130619
  Transmission Date: 20140414
  Serious: Yes (Hospitalization)
  Sender: FDA-Public Use
  Company Number: IT-SANOFI-AVENTIS-2013SA046227

PATIENT
  Age: 51 Year
  Sex: Female

DRUGS (10)
  1. LASIX [Suspect]
     Indication: HYPERTENSION
     Dosage: 2 POSOLOGICAL UNITS DAILY
     Route: 048
     Dates: start: 20020101, end: 20120102
  2. ALDACTONE [Concomitant]
     Route: 048
     Dates: start: 20080101
  3. POTASSIUM CHLORIDE [Concomitant]
  4. TORVAST [Concomitant]
  5. CONCOR [Concomitant]
  6. APIDRA [Concomitant]
     Route: 058
  7. ZYLORIC [Concomitant]
  8. LANTUS [Concomitant]
  9. CORDARONE [Concomitant]
  10. CARDIOASPIRIN [Concomitant]

REACTIONS (3)
  - Pseudo-Bartter syndrome [Not Recovered/Not Resolved]
  - Renal failure chronic [Not Recovered/Not Resolved]
  - Drug abuse [Not Recovered/Not Resolved]
